FAERS Safety Report 21969777 (Version 2)
Quarter: 2024Q1

REPORT INFORMATION
  Report Type: Report from Study
  Country: CA (occurrence: CA)
  Receive Date: 20230208
  Receipt Date: 20240111
  Transmission Date: 20240410
  Serious: Yes (Other)
  Sender: FDA-Public Use
  Company Number: CA-TAKEDA-2022TUS017072

PATIENT
  Sex: Female

DRUGS (9)
  1. VEDOLIZUMAB [Suspect]
     Active Substance: VEDOLIZUMAB
     Indication: Colitis ulcerative
     Dosage: 300 MILLIGRAM
     Route: 042
     Dates: start: 20170814
  2. VEDOLIZUMAB [Suspect]
     Active Substance: VEDOLIZUMAB
     Dosage: 300 MILLIGRAM
     Route: 042
  3. VEDOLIZUMAB [Suspect]
     Active Substance: VEDOLIZUMAB
     Dosage: 300 MILLIGRAM
     Route: 042
  4. VEDOLIZUMAB [Suspect]
     Active Substance: VEDOLIZUMAB
     Dosage: 300 MILLIGRAM
     Route: 042
  5. PREDNISONE [Concomitant]
     Active Substance: PREDNISONE
     Dosage: UNK
  6. MESALAMINE [Concomitant]
     Active Substance: MESALAMINE
     Dosage: UNK
  7. MESALAMINE [Concomitant]
     Active Substance: MESALAMINE
     Dosage: UNK
  8. ASACOL [Concomitant]
     Active Substance: MESALAMINE
     Dosage: UNK
  9. Salofalk [Concomitant]
     Dosage: UNK

REACTIONS (3)
  - Perinatal depression [Unknown]
  - Pregnancy [Recovered/Resolved]
  - Maternal exposure during breast feeding [Recovering/Resolving]
